FAERS Safety Report 5210497-5 (Version None)
Quarter: 2007Q1

REPORT INFORMATION
  Report Type: 
  Country: None (occurrence: None)
  Receive Date: 20070117
  Receipt Date: 20070115
  Transmission Date: 20070707
  Serious: Yes (Hospitalization, Disabling, Other)
  Sender: FDA-Public Use
  Company Number: US-BAYER-200615884BWH

PATIENT
  Age: 76 Year
  Sex: Male

DRUGS (5)
  1. LEVITRA [Suspect]
     Indication: ERECTILE DYSFUNCTION
     Dosage: TOTAL DAILY DOSE: 2.5 MG  UNIT DOSE: 10 MG
     Route: 048
     Dates: start: 20050601
  2. LUMIGAN [Concomitant]
     Route: 047
     Dates: start: 19990101
  3. LIPITOR [Concomitant]
  4. BENICAR [Concomitant]
  5. PRAVACHOL [Concomitant]

REACTIONS (5)
  - BLINDNESS [None]
  - BLINDNESS UNILATERAL [None]
  - HEADACHE [None]
  - MIGRAINE WITH AURA [None]
  - RETINAL DYSTROPHY [None]
